FAERS Safety Report 5368810-4 (Version None)
Quarter: 2007Q2

REPORT INFORMATION
  Report Type: 
  Country: None (occurrence: None)
  Receive Date: 20070622
  Receipt Date: 20070622
  Transmission Date: 20071010
  Serious: No
  Sender: FDA-Public Use
  Company Number: None

PATIENT
  Age: 47 Year
  Sex: Male
  Weight: 77.6 kg

DRUGS (1)
  1. ACETYLCYSTEINE [Suspect]
     Indication: OVERDOSE
     Dosage: ACETYLCYSTEINE  3880MG/500ML  OVER 4 HR X 1  IV DRIP
     Route: 041

REACTIONS (3)
  - INFUSION SITE ERYTHEMA [None]
  - INFUSION SITE REACTION [None]
  - INFUSION SITE SWELLING [None]
